FAERS Safety Report 8947964 (Version 1)
Quarter: 2012Q4

REPORT INFORMATION
  Report Type: Spontaneous
  Country: US (occurrence: None)
  Receive Date: 20121203
  Receipt Date: 20121203
  Transmission Date: 20130627
  Serious: Yes (Hospitalization)
  Sender: FDA-Public Use
  Company Number: None

PATIENT
  Age: 48 Year
  Sex: Male
  Weight: 108.86 kg

DRUGS (2)
  1. SIMVASTATIN [Suspect]
     Indication: BLOOD CHOLESTEROL INCREASED
     Dates: start: 20120612, end: 20121115
  2. ZETIA [Suspect]
     Indication: BLOOD CHOLESTEROL INCREASED
     Dates: start: 20120612, end: 20121115

REACTIONS (2)
  - Acute hepatic failure [None]
  - Pancreatitis [None]
